FAERS Safety Report 8220224-5 (Version None)
Quarter: 2012Q1

REPORT INFORMATION
  Report Type: 
  Country: None (occurrence: None)
  Receive Date: 20120320
  Receipt Date: 20120307
  Transmission Date: 20120608
  Serious: Yes (Other)
  Sender: FDA-Public Use
  Company Number: US-BAYER-2012-023592

PATIENT
  Age: 25 Year
  Sex: Female

DRUGS (5)
  1. YASMIN [Suspect]
     Dosage: UNK
  2. MOTRIN [Concomitant]
     Dosage: 800 MG, UNK
     Dates: start: 20090505
  3. YASMIN [Suspect]
     Dosage: UNK
     Dates: start: 20080211
  4. CLARITIN [Concomitant]
     Dosage: 10 MG, DAILY
     Route: 048
  5. YAZ [Suspect]
     Dosage: UNK

REACTIONS (1)
  - DEEP VEIN THROMBOSIS [None]
